FAERS Safety Report 4656473-2 (Version None)
Quarter: 2005Q2

REPORT INFORMATION
  Report Type: 
  Country: None (occurrence: None)
  Receive Date: 20050509
  Receipt Date: 20050414
  Transmission Date: 20051028
  Serious: Yes (Hospitalization, Other)
  Sender: FDA-Public Use
  Company Number: US-AMGEN-US126997

PATIENT
  Sex: Female

DRUGS (6)
  1. ENBREL [Suspect]
     Indication: PSORIATIC ARTHROPATHY
     Dates: start: 20040101, end: 20040601
  2. PREDNISONE TAB [Concomitant]
  3. DARVOCET-N 100 [Concomitant]
  4. URSO 250 [Concomitant]
  5. ESTROGENS [Concomitant]
  6. PROTONIX [Concomitant]

REACTIONS (9)
  - ACUTE RESPIRATORY DISTRESS SYNDROME [None]
  - CHEST DISCOMFORT [None]
  - EYE PAIN [None]
  - HERPES ZOSTER [None]
  - INTESTINAL PERFORATION [None]
  - PARAESTHESIA [None]
  - PNEUMONIA [None]
  - RELAPSING-REMITTING MULTIPLE SCLEROSIS [None]
  - URTICARIA [None]
